FAERS Safety Report 21051223 (Version 1)
Quarter: 2022Q3

REPORT INFORMATION
  Report Type: Spontaneous
  Country: FR (occurrence: FR)
  Receive Date: 20220707
  Receipt Date: 20220707
  Transmission Date: 20221026
  Serious: Yes (Other)
  Sender: FDA-Public Use
  Company Number: None

PATIENT
  Age: 74 Year
  Sex: Male
  Weight: 99 kg

DRUGS (2)
  1. ESCITALOPRAM [Interacting]
     Active Substance: ESCITALOPRAM OXALATE
     Indication: Mental disorder
     Dosage: UNIT DOSE: 10 MG, FREQUENCY TIME- 1 DAYS, THERAPY START DATE: ASKU
     Route: 048
     Dates: end: 20220524
  2. ELIQUIS [Interacting]
     Active Substance: APIXABAN
     Indication: Atrial fibrillation
     Dosage: FORM STRENGTH: 5 MG, UNIT DOSE:5 MG, FREQUENCY TIME- 1 DAYS, THERAPY START DATE: ASKU
     Route: 048
     Dates: end: 20220524

REACTIONS (2)
  - Haematoma [Recovering/Resolving]
  - Drug interaction [Recovering/Resolving]

NARRATIVE: CASE EVENT DATE: 20220524
